FAERS Safety Report 16665043 (Version 1)
Quarter: 2019Q3

REPORT INFORMATION
  Report Type: Spontaneous
  Country: US (occurrence: US)
  Receive Date: 20190803
  Receipt Date: 20190803
  Transmission Date: 20191004
  Serious: Yes (Other)
  Sender: FDA-Public Use
  Company Number: US-ACCORD-071031

PATIENT
  Age: 51 Year
  Sex: Female

DRUGS (18)
  1. METFORMIN [Concomitant]
     Active Substance: METFORMIN HYDROCHLORIDE
  2. VISTARIL [Concomitant]
     Active Substance: HYDROXYZINE PAMOATE
  3. ARIMIDEX [Concomitant]
     Active Substance: ANASTROZOLE
  4. CRESTOR [Concomitant]
     Active Substance: ROSUVASTATIN CALCIUM
  5. HERCEPTIN [Suspect]
     Active Substance: TRASTUZUMAB
     Indication: BREAST CANCER RECURRENT
     Dates: start: 20150326, end: 20150528
  6. AMLODIPINE [Concomitant]
     Active Substance: AMLODIPINE BESYLATE
     Dates: start: 1988
  7. MORPHINE [Concomitant]
     Active Substance: MORPHINE
  8. CALCIUM/ERGOCALCIFEROL [Concomitant]
  9. MOBIC [Concomitant]
     Active Substance: MELOXICAM
  10. AMITIZA [Concomitant]
     Active Substance: LUBIPROSTONE
     Dosage: STRENGTH: 24 MG
     Dates: start: 2009
  11. ATIVAN [Concomitant]
     Active Substance: LORAZEPAM
  12. DETROL [Concomitant]
     Active Substance: TOLTERODINE TARTRATE
  13. LISINOPRIL. [Concomitant]
     Active Substance: LISINOPRIL
  14. DOCETAXEL ACCORD [Suspect]
     Active Substance: DOCETAXEL
     Indication: BREAST CANCER RECURRENT
     Dates: start: 20150326, end: 20150528
  15. ACETYLSALICYLIC ACID [Concomitant]
     Active Substance: ASPIRIN
     Dosage: STRENGTH: 81 MG
     Dates: start: 2000
  16. DIFLUCAN [Concomitant]
     Active Substance: FLUCONAZOLE
  17. PARAPLATIN [Suspect]
     Active Substance: CARBOPLATIN
     Indication: BREAST CANCER RECURRENT
     Dates: start: 20150326, end: 20150528
  18. NORCO [Concomitant]
     Active Substance: ACETAMINOPHEN\HYDROCODONE BITARTRATE

REACTIONS (1)
  - Alopecia [Not Recovered/Not Resolved]
